FAERS Safety Report 7652337-0 (Version None)
Quarter: 2011Q3

REPORT INFORMATION
  Report Type: 
  Country: None (occurrence: None)
  Receive Date: 20110722
  Receipt Date: 20110215
  Transmission Date: 20111222
  Serious: Yes (Hospitalization)
  Sender: FDA-Public Use
  Company Number: UTC-005265

PATIENT
  Age: 60 Year
  Sex: Female

DRUGS (14)
  1. TRACLEER [Concomitant]
  2. LYRICA [Concomitant]
  3. REVATIO [Concomitant]
  4. ADVAIR DISKUS 100/50 [Concomitant]
  5. LASIX [Concomitant]
  6. PULMICORT [Concomitant]
  7. METOLAZONE [Concomitant]
  8. REMODULIN [Suspect]
     Dosage: 92.88 UG/KG (0.0645 UG/KG, 1 IN 1 MIN), INTRAVENOUS
     Route: 042
  9. POTASSIUM CHLORIDE [Concomitant]
  10. COUMADIN [Concomitant]
  11. NEXIUM [Concomitant]
  12. CARTIA XT [Concomitant]
  13. ZYRTEC [Concomitant]
  14. CEFEPIME [Concomitant]

REACTIONS (2)
  - DEVICE RELATED INFECTION [None]
  - DEVICE RELATED SEPSIS [None]
